FAERS Safety Report 7266070-0 (Version None)
Quarter: 2011Q1

REPORT INFORMATION
  Report Type: 
  Country: None (occurrence: None)
  Receive Date: 20110131
  Receipt Date: 20100601
  Transmission Date: 20110831
  Serious: No
  Sender: FDA-Public Use
  Company Number: US-ABBOTT-10P-163-0648984-00

PATIENT
  Sex: Male
  Weight: 97.61 kg

DRUGS (1)
  1. LUPRON DEPOT [Suspect]
     Indication: PROSTATE CANCER
     Dates: start: 20080101

REACTIONS (5)
  - DYSGEUSIA [None]
  - HOT FLUSH [None]
  - DEPRESSION [None]
  - WEIGHT INCREASED [None]
  - INCREASED APPETITE [None]
